FAERS Safety Report 6886045-0 (Version None)
Quarter: 2010Q3

REPORT INFORMATION
  Report Type: 
  Country: None (occurrence: None)
  Receive Date: 20100729
  Receipt Date: 20080605
  Transmission Date: 20110219
  Serious: Yes (Hospitalization, Other)
  Sender: FDA-Public Use
  Company Number: US-PFIZER INC-2008040303

PATIENT
  Age: 86 Year
  Sex: Female
  Weight: 78.5 kg

DRUGS (7)
  1. CELEBREX [Suspect]
     Route: 048
     Dates: start: 20080510, end: 20080512
  2. WARFARIN [Suspect]
     Indication: HYPERCOAGULATION
     Route: 048
  3. SOTALOL HCL [Concomitant]
     Dates: start: 20080228
  4. HYDRALAZINE HCL [Concomitant]
     Dates: start: 20030101
  5. IMDUR [Concomitant]
     Dates: start: 20030101
  6. SIMVASTATIN [Concomitant]
     Dates: start: 20050531
  7. LEXAPRO [Concomitant]
     Dates: start: 20031105

REACTIONS (6)
  - BLOOD CREATININE INCREASED [None]
  - GASTROINTESTINAL HAEMORRHAGE [None]
  - HAEMATOCHEZIA [None]
  - HAEMOGLOBIN DECREASED [None]
  - INTERNATIONAL NORMALISED RATIO INCREASED [None]
  - PLATELET COUNT DECREASED [None]
